FAERS Safety Report 5365715-X (Version None)
Quarter: 2007Q2

REPORT INFORMATION
  Report Type: 
  Country: None (occurrence: None)
  Receive Date: 20070621
  Receipt Date: 20070608
  Transmission Date: 20071010
  Serious: Yes (Other)
  Sender: FDA-Public Use
  Company Number: FR-ELI_LILLY_AND_COMPANY-FR200706002042

PATIENT
  Age: 57 Year
  Sex: Female

DRUGS (1)
  1. OPTRUMA [Suspect]
     Dosage: UNK, DAILY (1/D)
     Route: 048
     Dates: start: 20060301

REACTIONS (1)
  - UTERINE CANCER [None]
